FAERS Safety Report 7269250-3 (Version None)
Quarter: 2011Q1

REPORT INFORMATION
  Report Type: 
  Country: None (occurrence: None)
  Receive Date: 20110202
  Receipt Date: 20110118
  Transmission Date: 20110831
  Serious: Yes (Hospitalization)
  Sender: FDA-Public Use
  Company Number: US-ELI_LILLY_AND_COMPANY-US201012001567

PATIENT
  Age: 75 Year
  Sex: Female
  Weight: 64.308 kg

DRUGS (1)
  1. FORTEO [Suspect]
     Indication: OSTEOPOROSIS
     Dosage: 20 UG, DAILY (1/D)
     Dates: start: 20100902

REACTIONS (4)
  - ARTHRITIS [None]
  - PAIN IN EXTREMITY [None]
  - HOSPITALISATION [None]
  - ARTHRALGIA [None]
